FAERS Safety Report 7910352-3 (Version None)
Quarter: 2011Q4

REPORT INFORMATION
  Report Type: 
  Country: None (occurrence: None)
  Receive Date: 20111111
  Receipt Date: 20111101
  Transmission Date: 20120403
  Serious: Yes (Hospitalization)
  Sender: FDA-Public Use
  Company Number: BR-ROCHE-1008785

PATIENT
  Sex: Male

DRUGS (6)
  1. DIURETIC NOS [Suspect]
     Indication: SWELLING
  2. DIURETIC NOS [Suspect]
     Indication: DYSURIA
  3. CORTISONE ACETATE [Suspect]
     Indication: PRODUCT USED FOR UNKNOWN INDICATION
  4. CLONAZEPAM [Suspect]
     Indication: PRODUCT USED FOR UNKNOWN INDICATION
     Route: 065
  5. ALCOHOL [Suspect]
     Indication: PRODUCT USED FOR UNKNOWN INDICATION
     Dates: start: 20111028, end: 20111028
  6. POTASSIUM [Suspect]
     Indication: PRODUCT USED FOR UNKNOWN INDICATION

REACTIONS (7)
  - ARRHYTHMIA [None]
  - SWELLING [None]
  - ALCOHOL INTERACTION [None]
  - ALCOHOL POISONING [None]
  - CARDIAC ARREST [None]
  - STRESS [None]
  - HYPOKALAEMIA [None]
